FAERS Safety Report 7434693-1 (Version None)
Quarter: 2011Q2

REPORT INFORMATION
  Report Type: 
  Country: None (occurrence: None)
  Receive Date: 20110425
  Receipt Date: 20110329
  Transmission Date: 20111010
  Serious: Yes (Hospitalization, Other)
  Sender: FDA-Public Use
  Company Number: US-BAYER-201037166NA

PATIENT
  Age: 19 Year
  Sex: Female
  Weight: 76.19 kg

DRUGS (9)
  1. YASMIN [Suspect]
     Indication: PREMENSTRUAL SYNDROME
  2. SINGULAIR [Concomitant]
     Dosage: 10 MG, QD
     Route: 048
  3. ASCORBIC ACID [Concomitant]
  4. ALDACTONE NOS [Concomitant]
  5. ASACOL [Concomitant]
     Dosage: 400 MG, UNK
     Route: 048
  6. ZYRTEC [Concomitant]
     Dosage: 10 MG, QD
     Route: 048
  7. CANASA [Concomitant]
     Dosage: 500 MG, UNK
     Route: 054
  8. YASMIN [Suspect]
     Indication: ORAL CONTRACEPTION
     Dosage: UNK UNK, UNK
     Route: 048
     Dates: start: 20040101, end: 20050202
  9. PREDNISONE [Concomitant]
     Dosage: 40 MG, QD
     Route: 048

REACTIONS (4)
  - EMOTIONAL DISTRESS [None]
  - OEDEMA PERIPHERAL [None]
  - PULMONARY EMBOLISM [None]
  - PAIN IN EXTREMITY [None]
